FAERS Safety Report 14407294 (Version 1)
Quarter: 2018Q1

REPORT INFORMATION
  Report Type: Spontaneous
  Country: ES (occurrence: ES)
  Receive Date: 20180118
  Receipt Date: 20180118
  Transmission Date: 20180509
  Serious: Yes (Death, Hospitalization)
  Sender: FDA-Public Use
  Company Number: ES-B.I. PHARMACEUTICALS,INC./RIDGEFIELD-2018-BI-002831

PATIENT
  Age: 55 Year
  Sex: Male

DRUGS (1)
  1. PRAXBIND [Suspect]
     Active Substance: IDARUCIZUMAB
     Indication: PULMONARY HAEMORRHAGE
     Route: 065
     Dates: start: 20180116, end: 20180116

REACTIONS (3)
  - Neutrophil count abnormal [Unknown]
  - Renal failure [Unknown]
  - Coagulopathy [Fatal]

NARRATIVE: CASE EVENT DATE: 20180116
